FAERS Safety Report 10907255 (Version 1)
Quarter: 2015Q1

REPORT INFORMATION
  Report Type: Spontaneous
  Country: US (occurrence: None)
  Receive Date: 20150309
  Receipt Date: 20150309
  Transmission Date: 20150721
  Serious: No
  Sender: FDA-Public Use
  Company Number: None

PATIENT
  Age: 43 Year
  Sex: Male
  Weight: 92.99 kg

DRUGS (2)
  1. NASACORT ALLERGY NASAL SPRAY [Concomitant]
  2. STRATTERA [Suspect]
     Active Substance: ATOMOXETINE HYDROCHLORIDE
     Indication: ATTENTION DEFICIT/HYPERACTIVITY DISORDER
     Dosage: 1 PILL
     Route: 048
     Dates: start: 20150117, end: 20150305

REACTIONS (4)
  - Micturition urgency [None]
  - Erectile dysfunction [None]
  - Testicular disorder [None]
  - Semenuria [None]

NARRATIVE: CASE EVENT DATE: 20150217
